FAERS Safety Report 12282782 (Version 1)
Quarter: 2016Q2

REPORT INFORMATION
  Report Type: Spontaneous
  Country: US (occurrence: US)
  Receive Date: 20160419
  Receipt Date: 20160419
  Transmission Date: 20160815
  Serious: No
  Sender: FDA-Public Use
  Company Number: US-MYLANLABS-2015M1007230

PATIENT
  Sex: Female

DRUGS (2)
  1. TOPIRAMATE TABLETS, USP [Suspect]
     Active Substance: TOPIRAMATE
     Indication: HEADACHE
     Dosage: 150 MG, QD
     Route: 048
     Dates: start: 2013
  2. TOPIRAMATE TABLETS, USP [Suspect]
     Active Substance: TOPIRAMATE
     Indication: OFF LABEL USE

REACTIONS (1)
  - Headache [Not Recovered/Not Resolved]

NARRATIVE: CASE EVENT DATE: 20150227
